FAERS Safety Report 9198176 (Version 2)
Quarter: 2013Q3

REPORT INFORMATION
  Report Type: Spontaneous
  Country: US (occurrence: US)
  Receive Date: 20130329
  Receipt Date: 20130807
  Transmission Date: 20140515
  Serious: No
  Sender: FDA-Public Use
  Company Number: US-BIOGENIDEC-2013BI026948

PATIENT
  Age: 57 Year
  Sex: Female

DRUGS (8)
  1. AVONEX [Suspect]
     Indication: MULTIPLE SCLEROSIS
     Route: 030
     Dates: start: 20110324, end: 20130318
  2. ZOCOR [Concomitant]
     Indication: BLOOD CHOLESTEROL INCREASED
  3. LEXAPRO [Concomitant]
     Indication: DEPRESSION
     Dates: start: 2004
  4. LEXAPRO [Concomitant]
     Indication: BIPOLAR DISORDER
     Dates: start: 2004
  5. XANAX [Concomitant]
     Indication: DEPRESSION
     Dates: start: 2004
  6. XANAX [Concomitant]
     Indication: BIPOLAR DISORDER
     Dates: start: 2004
  7. LAMICTAL [Concomitant]
     Indication: DEPRESSION
     Dates: start: 2004
  8. LAMICTAL [Concomitant]
     Indication: BIPOLAR DISORDER
     Dates: start: 2004

REACTIONS (12)
  - Memory impairment [Not Recovered/Not Resolved]
  - Cognitive disorder [Recovered/Resolved]
  - Spinal osteoarthritis [Not Recovered/Not Resolved]
  - Injection site dryness [Not Recovered/Not Resolved]
  - Feeling cold [Recovered/Resolved]
  - Injection site bruising [Not Recovered/Not Resolved]
  - Injection site reaction [Not Recovered/Not Resolved]
  - Fatigue [Not Recovered/Not Resolved]
  - Muscular weakness [Not Recovered/Not Resolved]
  - Feeling abnormal [Recovered/Resolved]
  - Influenza like illness [Recovered/Resolved]
  - Pain [Unknown]
